FAERS Safety Report 9798704 (Version 1)
Quarter: 2014Q1

REPORT INFORMATION
  Report Type: Spontaneous
  Country: US (occurrence: US)
  Receive Date: 20140106
  Receipt Date: 20140106
  Transmission Date: 20141002
  Serious: No
  Sender: FDA-Public Use
  Company Number: US-GILEAD-2010-0029862

PATIENT
  Sex: Female
  Weight: 77.11 kg

DRUGS (9)
  1. LETAIRIS [Suspect]
     Indication: PULMONARY ARTERIAL HYPERTENSION
     Route: 048
     Dates: start: 20071102
  2. REVATIO [Concomitant]
  3. DIOVAN [Concomitant]
  4. METOCLOPRAMIDE [Concomitant]
  5. COUMADIN [Concomitant]
  6. CALCIUM [Concomitant]
  7. EFFEXOR [Concomitant]
  8. ALLEGRA-D [Concomitant]
  9. IMODIUM A-D [Concomitant]

REACTIONS (1)
  - Fatigue [Unknown]
